FAERS Safety Report 17810622 (Version 1)
Quarter: 2020Q2

REPORT INFORMATION
  Report Type: Spontaneous
  Country: US (occurrence: US)
  Receive Date: 20200521
  Receipt Date: 20200521
  Transmission Date: 20200714
  Serious: No
  Sender: FDA-Public Use
  Company Number: US-JNJFOC-20200427067

PATIENT
  Age: 57 Year
  Sex: Male
  Weight: 81.72 kg

DRUGS (1)
  1. MENS ROGAINE EXTRA STRENGTH [Suspect]
     Active Substance: MINOXIDIL
     Indication: ALOPECIA
     Dosage: DOSE:HALF A CAPFUL?LAST USED PRODUCT ON 18-APR-2020.
     Route: 061
     Dates: start: 20200416

REACTIONS (1)
  - Application site irritation [Recovered/Resolved]

NARRATIVE: CASE EVENT DATE: 20200417
